FAERS Safety Report 7483607-7 (Version None)
Quarter: 2011Q2

REPORT INFORMATION
  Report Type: 
  Country: None (occurrence: None)
  Receive Date: 20110517
  Receipt Date: 20110511
  Transmission Date: 20111010
  Serious: No
  Sender: FDA-Public Use
  Company Number: US-PFIZER INC-2011102166

PATIENT
  Sex: Female

DRUGS (1)
  1. ALPRAZOLAM [Suspect]
     Dosage: 0.5 MG, UNK

REACTIONS (4)
  - REFLUX GASTRITIS [None]
  - ABDOMINAL DISCOMFORT [None]
  - ERUCTATION [None]
  - DYSGEUSIA [None]
